FAERS Safety Report 7897250-9 (Version None)
Quarter: 2011Q4

REPORT INFORMATION
  Report Type: 
  Country: None (occurrence: None)
  Receive Date: 20111107
  Receipt Date: 20111101
  Transmission Date: 20120403
  Serious: Yes (Other)
  Sender: FDA-Public Use
  Company Number: US-AMGEN-USASP2011056640

PATIENT
  Age: 22 Month
  Sex: Female

DRUGS (2)
  1. ENBREL [Suspect]
  2. ENBREL [Suspect]
     Indication: JUVENILE ARTHRITIS
     Dosage: UNK

REACTIONS (2)
  - ONYCHOMYCOSIS [None]
  - BLOOD ALKALINE PHOSPHATASE INCREASED [None]
